FAERS Safety Report 8924464 (Version 1)
Quarter: 2012Q4

REPORT INFORMATION
  Report Type: Report from Study
  Country: JP (occurrence: JP)
  Receive Date: 20121127
  Receipt Date: 20121127
  Transmission Date: 20130627
  Serious: Yes (Other)
  Sender: FDA-Public Use
  Company Number: JP-009507513-2012SP024439

PATIENT
  Age: 68 Year
  Sex: Male
  Weight: 59 kg

DRUGS (8)
  1. PEGINTERFERON ALFA-2B [Suspect]
     Indication: CHRONIC HEPATITIS C
     Dosage: 90 ?g/kg, QW
     Route: 058
     Dates: start: 20120302, end: 20120814
  2. REBETOL [Suspect]
     Indication: CHRONIC HEPATITIS C
     Dosage: 400 mg, QD
     Route: 048
     Dates: start: 20120305, end: 20120325
  3. REBETOL [Suspect]
     Dosage: 200 mg, QD
     Route: 048
     Dates: start: 20120326, end: 20120618
  4. REBETOL [Suspect]
     Dosage: 400 mg, qd
     Route: 048
     Dates: start: 20120619, end: 20120625
  5. REBETOL [Suspect]
     Dosage: 600 mg, qd
     Route: 048
     Dates: start: 20120626, end: 20120820
  6. TELAVIC [Suspect]
     Indication: CHRONIC HEPATITIS C
     Dosage: 1500 mg, QD
     Route: 048
     Dates: start: 20120305, end: 20120528
  7. URSO [Concomitant]
     Indication: CHRONIC HEPATITIS C
     Dosage: 300 mg, QD
     Route: 048
     Dates: start: 2000
  8. STRONGER NEO-MINOPHAGEN C [Concomitant]
     Indication: CHRONIC HEPATITIS C
     Dosage: 60 ml, qd
     Route: 042
     Dates: start: 20110531, end: 20120525

REACTIONS (3)
  - Hyperuricaemia [Recovering/Resolving]
  - Blood creatinine increased [Recovering/Resolving]
  - Blood creatinine increased [Recovering/Resolving]
